FAERS Safety Report 5311678-2 (Version None)
Quarter: 2007Q2

REPORT INFORMATION
  Report Type: 
  Country: None (occurrence: None)
  Receive Date: 20070430
  Receipt Date: 20070207
  Transmission Date: 20071010
  Serious: No
  Sender: FDA-Public Use
  Company Number: 2007UW02562

PATIENT
  Age: 34 Year
  Sex: Female
  Weight: 73.9 kg

DRUGS (2)
  1. ZOMIG [Suspect]
     Indication: MIGRAINE
     Route: 045
     Dates: start: 20050101
  2. DOXYCYCLINE [Concomitant]

REACTIONS (1)
  - PETECHIAE [None]
